FAERS Safety Report 13987954 (Version 1)
Quarter: 2017Q3

REPORT INFORMATION
  Report Type: Spontaneous
  Country: FR (occurrence: FR)
  Receive Date: 20170919
  Receipt Date: 20170919
  Transmission Date: 20171128
  Serious: Yes (Hospitalization)
  Sender: FDA-Public Use
  Company Number: FR-SA-2017SA167704

PATIENT
  Age: 23 Day
  Sex: Female
  Weight: 2.9 kg

DRUGS (3)
  1. POLARAMINE [Concomitant]
     Active Substance: DEXCHLORPHENIRAMINE MALEATE
     Indication: PREMEDICATION
  2. CAMPATH [Suspect]
     Active Substance: ALEMTUZUMAB
     Dosage: DOSE OF 0.5 MG/KG ON DAY 1, 1MG/KG DAY 2 AND DAY 3 FOR 3 DAYS
     Route: 041
     Dates: start: 20170628, end: 20170721
  3. CYCLOSPORINE. [Concomitant]
     Active Substance: CYCLOSPORINE
     Indication: HISTIOCYTOSIS HAEMATOPHAGIC
     Route: 065

REACTIONS (3)
  - Oliguria [Recovered/Resolved]
  - Neurological decompensation [Recovered/Resolved]
  - Off label use [Unknown]

NARRATIVE: CASE EVENT DATE: 20170628
